FAERS Safety Report 5929415-7 (Version None)
Quarter: 2008Q4

REPORT INFORMATION
  Report Type: 
  Country: None (occurrence: None)
  Receive Date: 20081024
  Receipt Date: 20080812
  Transmission Date: 20090506
  Serious: Yes (Other)
  Sender: FDA-Public Use
  Company Number: US-SANOFI-SYNTHELABO-A03200802366

PATIENT
  Sex: Male

DRUGS (2)
  1. PLAVIX [Suspect]
     Indication: CORONARY ARTERY DISEASE
     Dosage: UNK
     Route: 048
     Dates: start: 20070201
  2. PLAVIX [Suspect]
     Route: 048
     Dates: start: 20070608

REACTIONS (3)
  - OVERDOSE [None]
  - PLATELET AGGREGATION DECREASED [None]
  - VASCULAR GRAFT COMPLICATION [None]
